FAERS Safety Report 6420804-3 (Version None)
Quarter: 2009Q4

REPORT INFORMATION
  Report Type: 
  Country: None (occurrence: None)
  Receive Date: 20091030
  Receipt Date: 20091020
  Transmission Date: 20100525
  Serious: Yes (Other)
  Sender: FDA-Public Use
  Company Number: US-CELGENEUS-163-21880-09101862

PATIENT
  Sex: Female

DRUGS (4)
  1. REVLIMID [Suspect]
     Indication: MULTIPLE MYELOMA
     Route: 048
     Dates: start: 20091002, end: 20091006
  2. REVLIMID [Suspect]
     Route: 048
     Dates: start: 20090701
  3. REVLIMID [Suspect]
     Dosage: 10MG-15MG-25MG
     Route: 048
     Dates: start: 20070501, end: 20080101
  4. REVLIMID [Suspect]
     Dates: start: 20090901

REACTIONS (5)
  - ABASIA [None]
  - DIARRHOEA [None]
  - PYREXIA [None]
  - VISION BLURRED [None]
  - VOMITING [None]
